FAERS Safety Report 4386774-7 (Version None)
Quarter: 2004Q2

REPORT INFORMATION
  Report Type: 
  Country: None (occurrence: None)
  Receive Date: 20040607
  Receipt Date: 20030602
  Transmission Date: 20050107
  Serious: No
  Sender: FDA-Public Use
  Company Number: 337406

PATIENT
  Age: 19 Year
  Sex: Female

DRUGS (1)
  1. ACCUTANE [Suspect]
     Indication: ACNE
     Dosage: 60 MG DAILY ORAL
     Route: 048
     Dates: start: 20021215, end: 20030430

REACTIONS (3)
  - ADVERSE EVENT [None]
  - DEPRESSION [None]
  - DEPRESSIVE SYMPTOM [None]
